FAERS Safety Report 5123466-0 (Version None)
Quarter: 2006Q4

REPORT INFORMATION
  Report Type: 
  Country: None (occurrence: None)
  Receive Date: 20061009
  Receipt Date: 20060818
  Transmission Date: 20070319
  Serious: Yes (Life-Threatening)
  Sender: FDA-Public Use
  Company Number: JP-BOEHRINGER INGELHEIM PHARMACEUTICALS, INC.-2006-BP-09717NB

PATIENT
  Age: 84 Year
  Sex: Female

DRUGS (4)
  1. MOBIC [Suspect]
     Indication: INTERVERTEBRAL DISC COMPRESSION
     Route: 048
     Dates: start: 20060622, end: 20060810
  2. ROCEPHIN [Suspect]
     Route: 042
  3. ARICEPT [Concomitant]
     Indication: DEMENTIA ALZHEIMER'S TYPE
     Route: 048
     Dates: end: 20060810
  4. SOLANTAL [Concomitant]
     Indication: BACK PAIN
     Route: 048

REACTIONS (2)
  - BLOOD BILIRUBIN INCREASED [None]
  - HAEMOLYTIC ANAEMIA [None]
